FAERS Safety Report 10144168 (Version 1)
Quarter: 2014Q2

REPORT INFORMATION
  Report Type: Spontaneous
  Country: FR (occurrence: FR)
  Receive Date: 20140430
  Receipt Date: 20140430
  Transmission Date: 20141212
  Serious: Yes (Hospitalization)
  Sender: FDA-Public Use
  Company Number: FR-ASTRAZENECA-2014SE28592

PATIENT
  Age: 20006 Day
  Sex: Male

DRUGS (4)
  1. TENORMINE [Suspect]
     Indication: HYPERTENSION
     Route: 048
     Dates: start: 19960101, end: 20140314
  2. OLMETEC [Suspect]
     Indication: HYPERTENSION
     Route: 048
     Dates: start: 20120301, end: 20140314
  3. FLECAINE L.P [Suspect]
     Indication: ARRHYTHMIA
     Route: 048
     Dates: start: 200610, end: 200909
  4. FLECAINE L.P [Suspect]
     Indication: ARRHYTHMIA
     Route: 048
     Dates: start: 20131118, end: 20140314

REACTIONS (8)
  - Weight decreased [Unknown]
  - Condition aggravated [Unknown]
  - Dehydration [Unknown]
  - Renal failure acute [Unknown]
  - Diarrhoea [Recovering/Resolving]
  - Vomiting [Unknown]
  - Gastrooesophageal reflux disease [Unknown]
  - Gastrointestinal disorder [Unknown]
